FAERS Safety Report 23887603 (Version 4)
Quarter: 2024Q4

REPORT INFORMATION
  Report Type: Spontaneous
  Country: US (occurrence: US)
  Receive Date: 20240523
  Receipt Date: 20241127
  Transmission Date: 20250114
  Serious: Yes (Hospitalization, Other)
  Sender: ACCORD
  Company Number: US-Accord-424763

PATIENT
  Age: 76 Year
  Sex: Female
  Weight: 50.4 kg

DRUGS (13)
  1. CARBOPLATIN [Suspect]
     Active Substance: CARBOPLATIN
     Indication: Small cell lung cancer extensive stage
     Dosage: Q3W
     Route: 042
     Dates: start: 20240212, end: 20240212
  2. ETOPOSIDE [Suspect]
     Active Substance: ETOPOSIDE
     Indication: Small cell lung cancer extensive stage
     Dosage: Q3W, DAY 1 TO DAY 3 OF EACH CYCLE
     Route: 042
     Dates: start: 20240212, end: 20240214
  3. GLUCOSAMINE/CHONDROITIN [Concomitant]
     Indication: Arthritis
     Dosage: QID
     Route: 048
     Dates: start: 1998
  4. ADEMETIONINE [Concomitant]
     Active Substance: ADEMETIONINE
     Indication: Arthritis
     Dosage: QID
     Route: 048
     Dates: start: 1998
  5. B12 [Concomitant]
     Indication: Vitamin B12 decreased
     Dosage: QID
     Route: 048
     Dates: start: 20240131
  6. VITAMIN D3 [Concomitant]
     Active Substance: CHOLECALCIFEROL
     Dosage: QID
     Route: 048
     Dates: start: 2012
  7. LINUM USITATISSIMUM SEED OIL [Concomitant]
     Dosage: QID
     Route: 048
     Dates: start: 2012
  8. MAGNESIUM [Concomitant]
     Active Substance: MAGNESIUM
     Route: 048
     Dates: start: 20220802
  9. ZINC GLUCONATE [Concomitant]
     Active Substance: ZINC GLUCONATE
     Dosage: QID
     Route: 048
     Dates: start: 20231002
  10. ONDANSETRON [Concomitant]
     Active Substance: ONDANSETRON
     Indication: Nausea
     Dosage: PRN
     Route: 048
     Dates: start: 20240131
  11. CLOPIDOGREL [Concomitant]
     Active Substance: CLOPIDOGREL BISULFATE
     Indication: Myocardial infarction
     Dosage: QID
     Route: 048
     Dates: start: 20240312
  12. AMLODIPINE [Concomitant]
     Active Substance: AMLODIPINE BESYLATE
     Indication: Hypertension
     Dosage: QID
     Route: 048
     Dates: start: 20240312
  13. ATORVASTATIN [Concomitant]
     Active Substance: ATORVASTATIN
     Indication: Hyperlipidaemia
     Dosage: QID
     Route: 048
     Dates: start: 20240311

REACTIONS (2)
  - Clostridium difficile colitis [Recovered/Resolved]
  - Fatigue [Not Recovered/Not Resolved]

NARRATIVE: CASE EVENT DATE: 20240423
